FAERS Safety Report 11369088 (Version 1)
Quarter: 2015Q3

REPORT INFORMATION
  Report Type: Spontaneous
  Country: US (occurrence: None)
  Receive Date: 20150811
  Receipt Date: 20150811
  Transmission Date: 20151125
  Serious: Yes (Hospitalization)
  Sender: FDA-Public Use
  Company Number: None

PATIENT
  Age: 65 Year
  Sex: Male
  Weight: 75.9 kg

DRUGS (1)
  1. SUNITINIB MALATE (SU011248 L-MALATE) [Suspect]
     Active Substance: SUNITINIB MALATE
     Dates: end: 20150802

REACTIONS (4)
  - Brain oedema [None]
  - Visual impairment [None]
  - Metastases to central nervous system [None]
  - Balance disorder [None]

NARRATIVE: CASE EVENT DATE: 20150803
